FAERS Safety Report 24331624 (Version 1)
Quarter: 2024Q3

REPORT INFORMATION
  Report Type: Spontaneous
  Country: PL (occurrence: PL)
  Receive Date: 20240918
  Receipt Date: 20240918
  Transmission Date: 20241016
  Serious: Yes (Other)
  Sender: RANBAXY
  Company Number: PL-SUN PHARMACEUTICAL INDUSTRIES LTD-2024R1-468379

PATIENT
  Age: 41 Year
  Sex: Female

DRUGS (2)
  1. PREDNISONE [Suspect]
     Active Substance: PREDNISONE
     Indication: Lichen planus
     Dosage: UNK (40 MG)
     Route: 065
     Dates: start: 202312
  2. PREDNISONE [Suspect]
     Active Substance: PREDNISONE
     Dosage: UNK (5 MG)
     Route: 065

REACTIONS (1)
  - Therapy partial responder [Unknown]
